FAERS Safety Report 16802622 (Version 5)
Quarter: 2019Q4

REPORT INFORMATION
  Report Type: Spontaneous
  Country: US (occurrence: US)
  Receive Date: 20190912
  Receipt Date: 20191227
  Transmission Date: 20200122
  Serious: Yes (Other)
  Sender: FDA-Public Use
  Company Number: US-ROCHE-2408232

PATIENT
  Age: 40 Year
  Sex: Male

DRUGS (2)
  1. HEMLIBRA [Suspect]
     Active Substance: EMICIZUMAB-KXWH
     Dosage: 60 MG/0.4 ML
     Route: 058
     Dates: start: 20190222
  2. HEMLIBRA [Suspect]
     Active Substance: EMICIZUMAB-KXWH
     Indication: FACTOR VIII DEFICIENCY
     Dosage: 60 MG/0.4 ML
     Route: 058
     Dates: start: 20190221

REACTIONS (2)
  - Haemorrhage [Unknown]
  - Haemarthrosis [Unknown]

NARRATIVE: CASE EVENT DATE: 201908
